FAERS Safety Report 5469308-5 (Version None)
Quarter: 2007Q3

REPORT INFORMATION
  Report Type: 
  Country: None (occurrence: None)
  Receive Date: 20070926
  Receipt Date: 20070926
  Transmission Date: 20080115
  Serious: No
  Sender: FDA-Public Use
  Company Number: None

PATIENT
  Age: 56 Year
  Sex: Male
  Weight: 81.6475 kg

DRUGS (2)
  1. AMOXIL [Suspect]
     Indication: SINUSITIS
     Dosage: 875 MG BID PO
     Route: 048
     Dates: start: 20070924
  2. TUSSI D. [Suspect]
     Dosage: BID P.O.
     Route: 048
     Dates: start: 20070924

REACTIONS (4)
  - DERMATITIS BULLOUS [None]
  - DYSPHAGIA [None]
  - ERYTHEMA [None]
  - SWELLING FACE [None]
